FAERS Safety Report 9076168 (Version 1)
Quarter: 2013Q1

REPORT INFORMATION
  Report Type: Report from Study
  Country: US (occurrence: US)
  Receive Date: 20130129
  Receipt Date: 20130129
  Transmission Date: 20140127
  Serious: No
  Sender: FDA-Public Use
  Company Number: US-ABBOTT-12P-163-0932071-00

PATIENT
  Age: 66 Year
  Sex: Female

DRUGS (4)
  1. HUMIRA 40 MG/0.8 ML PEN [Suspect]
     Indication: RHEUMATOID ARTHRITIS
     Dates: start: 20120306
  2. ORACEA [Concomitant]
     Indication: ROSACEA
     Dosage: 40MG DAILY
  3. ARAVA [Concomitant]
     Indication: ARTHRITIS
     Dosage: 20MG DAILY
  4. LISINOPRIL [Concomitant]
     Indication: BLOOD PRESSURE
     Dosage: 10MG DAILY

REACTIONS (2)
  - Injection site pain [Recovered/Resolved]
  - Injection site pain [Recovered/Resolved]
